FAERS Safety Report 17680453 (Version 3)
Quarter: 2020Q2

REPORT INFORMATION
  Report Type: Spontaneous
  Country: BR (occurrence: BR)
  Receive Date: 20200417
  Receipt Date: 20200505
  Transmission Date: 20200714
  Serious: Yes (Hospitalization, Other)
  Sender: FDA-Public Use
  Company Number: BR-SA-2020SA096006

PATIENT
  Age: 11 Year
  Sex: Female
  Weight: 36 kg

DRUGS (8)
  1. APIDRA SOLOSTAR [Suspect]
     Active Substance: INSULIN GLULISINE
     Dosage: (DOSE INCREASED; HIGHER DOSAGE)
  2. HUMALOG [Concomitant]
     Active Substance: INSULIN LISPRO
     Dosage: UNK
  3. APIDRA SOLOSTAR [Suspect]
     Active Substance: INSULIN GLULISINE
     Indication: TYPE 1 DIABETES MELLITUS
     Dosage: (3 IU IN THE MORNING 1 IU AFTER BREAKFAST AND IN THE AFTERNOON BETWEEN 13 IU TO 15 IU), TID (3 IU IN
     Route: 058
  4. LANTUS [Suspect]
     Active Substance: INSULIN GLARGINE
     Indication: TYPE 1 DIABETES MELLITUS
     Dosage: 10 IU, BID (10 IU IN MORNING AND AT NIGHT)
     Route: 058
  5. TRESIBA [Suspect]
     Active Substance: INSULIN DEGLUDEC
     Dosage: UNK
  6. LANTUS [Suspect]
     Active Substance: INSULIN GLARGINE
     Dosage: UNK
     Route: 058
  7. LANTUS [Suspect]
     Active Substance: INSULIN GLARGINE
     Dosage: 14 IU, QD
     Route: 058
  8. NOVORAPID [Concomitant]
     Active Substance: INSULIN ASPART
     Dosage: UNK

REACTIONS (9)
  - Inappropriate schedule of product administration [Unknown]
  - Multiple use of single-use product [Unknown]
  - Adverse event [Recovered/Resolved]
  - Vomiting [Unknown]
  - Hepatic cirrhosis [Unknown]
  - Decreased appetite [Unknown]
  - Drug ineffective [Unknown]
  - Malaise [Unknown]
  - Blood glucose increased [Unknown]
